FAERS Safety Report 9304827 (Version 2)
Quarter: 2013Q3

REPORT INFORMATION
  Report Type: Spontaneous
  Country: DE (occurrence: None)
  Receive Date: 20130521
  Receipt Date: 20130701
  Transmission Date: 20140515
  Serious: Yes (Disabling, Other)
  Sender: FDA-Public Use
  Company Number: TPG2013A00568

PATIENT
  Age: 62 Year
  Sex: Male

DRUGS (4)
  1. EDARBI [Suspect]
     Indication: ESSENTIAL HYPERTENSION
     Route: 048
     Dates: start: 20121113
  2. AMLODIPINE (AMLODIPINE) [Concomitant]
  3. PLATELET AGGREGATION INHIBITORS (PLATELET AGGREGATION INHIBITORS EXCL. HEPARIN) [Concomitant]
  4. OTHER THERAPEUTIC PRODUCT(ALL OTHER THERAPEUTIC PRODUCTS) [Concomitant]

REACTIONS (4)
  - Cardiac failure [None]
  - Myocarditis [None]
  - Respiratory tract infection bacterial [None]
  - Blood creatinine increased [None]
